FAERS Safety Report 6279321-6 (Version None)
Quarter: 2009Q3

REPORT INFORMATION
  Report Type: 
  Country: None (occurrence: None)
  Receive Date: 20090723
  Receipt Date: 20081027
  Transmission Date: 20100115
  Serious: No
  Sender: FDA-Public Use
  Company Number: US-AMGEN-KDL303132

PATIENT
  Sex: Female
  Weight: 55.4 kg

DRUGS (4)
  1. PROCRIT [Suspect]
     Indication: RENAL FAILURE CHRONIC
  2. UNSPECIFIED ANTIHYPERTENSIVE AGENT [Concomitant]
  3. UNSPECIFIED THYROID MEDICATION [Concomitant]
  4. SLEEPING MEDICATION NOS [Concomitant]

REACTIONS (2)
  - BLOOD COUNT ABNORMAL [None]
  - FEELING ABNORMAL [None]
